FAERS Safety Report 6942173-2 (Version None)
Quarter: 2010Q3

REPORT INFORMATION
  Report Type: 
  Country: None (occurrence: None)
  Receive Date: 20100826
  Receipt Date: 20100726
  Transmission Date: 20110219
  Serious: No
  Sender: FDA-Public Use
  Company Number: US-BAYER-201018841BCC

PATIENT
  Sex: Male
  Weight: 84 kg

DRUGS (4)
  1. ALEVE (CAPLET) [Suspect]
     Indication: BACK PAIN
     Dosage: TOTAL DAILY DOSE: 220 MG  UNIT DOSE: 220 MG
     Route: 048
     Dates: start: 20100101, end: 20100101
  2. SIMVASTATIN [Concomitant]
     Route: 065
  3. METFORMIN [Concomitant]
     Route: 065
  4. ALIGN [Concomitant]
     Route: 065

REACTIONS (2)
  - CONSTIPATION [None]
  - FLATULENCE [None]
